FAERS Safety Report 5396844-2 (Version None)
Quarter: 2007Q3

REPORT INFORMATION
  Report Type: 
  Country: None (occurrence: None)
  Receive Date: 20070725
  Receipt Date: 20060811
  Transmission Date: 20080115
  Serious: No
  Sender: FDA-Public Use
  Company Number: US-AMGEN-KDL189939

PATIENT
  Sex: Female

DRUGS (10)
  1. PROCRIT [Suspect]
     Indication: RENAL FAILURE CHRONIC
     Dates: start: 20060320, end: 20060728
  2. ATACAND [Concomitant]
  3. ATENOLOL [Concomitant]
  4. COLCHICINE [Concomitant]
  5. COUMADIN [Concomitant]
  6. LASIX [Concomitant]
  7. LANOXIN [Concomitant]
  8. NITRODUR II [Concomitant]
     Route: 062
  9. PRILOSEC [Concomitant]
  10. ZOCOR [Concomitant]

REACTIONS (3)
  - DIZZINESS [None]
  - FATIGUE [None]
  - MUSCLE SPASMS [None]
